FAERS Safety Report 7568675-6 (Version None)
Quarter: 2011Q2

REPORT INFORMATION
  Report Type: 
  Country: None (occurrence: None)
  Receive Date: 20110617
  Receipt Date: 20110606
  Transmission Date: 20111010
  Serious: Yes (Hospitalization)
  Sender: FDA-Public Use
  Company Number: 2011-1529

PATIENT
  Age: 61 Year
  Sex: Female

DRUGS (9)
  1. SINTROM V.A(ACENOCOUMAROL) [Concomitant]
  2. METOPROLOL TARTRATE [Concomitant]
  3. ALFUZOSINE (ALFUZOSIN) [Concomitant]
  4. SPIRIVA [Concomitant]
  5. KALIUMLOSARTAN/HCT (HYZAAR) [Concomitant]
  6. SOMATULINE AUTOSOLUTION 90MG (LANORETIDE AUTOGEL) (LANOREOTIDE) (LANRE [Suspect]
  7. LASIX [Concomitant]
  8. HYDROXYZINE [Concomitant]
  9. SOMATULINE AUTOSOLUTION 90MG (LANREOTIDE AUTOGEL) (LANREOTIDE) (LANREO [Suspect]
     Indication: NEUROENDOCRINE TUMOUR
     Dosage: 90MG (90 MG,1 IN 28 D),INTRAMUSCULAR
     Route: 030
     Dates: start: 20080225

REACTIONS (2)
  - ABDOMINAL PAIN [None]
  - GASTROINTESTINAL DISORDER [None]
